FAERS Safety Report 16002213 (Version 1)
Quarter: 2019Q1

REPORT INFORMATION
  Report Type: Spontaneous
  Country: US (occurrence: US)
  Receive Date: 20190225
  Receipt Date: 20190225
  Transmission Date: 20190418
  Serious: No
  Sender: FDA-Public Use
  Company Number: US-IGSA-SR10006406

PATIENT
  Age: 81 Year
  Sex: Male
  Weight: 59.4 kg

DRUGS (2)
  1. PROLASTIN-C [Suspect]
     Active Substance: .ALPHA.1-PROTEINASE INHIBITOR HUMAN
     Dosage: UNK, Q.WK.
     Route: 042
     Dates: start: 201001
  2. PROLASTIN-C [Suspect]
     Active Substance: .ALPHA.1-PROTEINASE INHIBITOR HUMAN
     Indication: ALPHA-1 ANTI-TRYPSIN DEFICIENCY
     Dosage: 3564 MG, Q.WK.
     Route: 042
     Dates: start: 20180522, end: 20180522

REACTIONS (5)
  - Hypersensitivity [Recovering/Resolving]
  - Chest discomfort [Recovering/Resolving]
  - Dyspnoea [Recovering/Resolving]
  - Flushing [None]
  - Dizziness [Recovering/Resolving]

NARRATIVE: CASE EVENT DATE: 20180522
